FAERS Safety Report 23938167 (Version 3)
Quarter: 2024Q2

REPORT INFORMATION
  Report Type: Spontaneous
  Country: US (occurrence: US)
  Receive Date: 20240604
  Receipt Date: 20240618
  Transmission Date: 20240715
  Serious: Yes (Other)
  Sender: FDA-Public Use
  Company Number: US-ORGANON-O2406USA000089

PATIENT
  Age: 25 Year
  Sex: Female
  Weight: 128 kg

DRUGS (2)
  1. NEXPLANON [Suspect]
     Active Substance: ETONOGESTREL
     Indication: Contraception
     Dosage: 1 IMPLANT IN LEFT UPPER ARM, 68 MG
     Route: 059
     Dates: start: 20210921, end: 20240614
  2. PLAN B [Suspect]
     Active Substance: LEVONORGESTREL
     Dosage: 1 DOSAGE FORM, ONCE (1.5 MILLIGRAM WITHIN 72 HOURS (3 DAYS)  AFTER UNPROTECTED INTERCOURCE
     Route: 048
     Dates: start: 20210921, end: 20240531

REACTIONS (7)
  - Device dislocation [Recovered/Resolved]
  - Device issue [Recovered/Resolved]
  - Complication of device removal [Recovered/Resolved]
  - Complication associated with device [Recovered/Resolved]
  - Device breakage [Recovered/Resolved]
  - Blood pressure increased [Unknown]
  - Vaginal haemorrhage [Unknown]

NARRATIVE: CASE EVENT DATE: 20210921
